FAERS Safety Report 11203541 (Version 2)
Quarter: 2015Q3

REPORT INFORMATION
  Report Type: Report from Study
  Country: AR (occurrence: AR)
  Receive Date: 20150619
  Receipt Date: 20150710
  Transmission Date: 20151125
  Serious: Yes (Death, Hospitalization)
  Sender: FDA-Public Use
  Company Number: AR-009507513-1506ARG008799

PATIENT
  Age: 66 Year
  Sex: Male

DRUGS (11)
  1. AMLODIPINE [Concomitant]
     Active Substance: AMLODIPINE BESYLATE
     Indication: HYPERTENSION
     Dosage: 10 MG, QD. FORMULATION PILL
     Route: 048
     Dates: start: 20150417
  2. ALBUTEROL. [Concomitant]
     Active Substance: ALBUTEROL
     Indication: DYSPNOEA
     Dosage: TOTAL DAILY DOSE: 200 MICROGRAM, PRN
     Route: 055
     Dates: start: 20150429
  3. DICLOFENAC [Concomitant]
     Active Substance: DICLOFENAC
     Indication: NECK PAIN
     Dosage: TOTAL DAILY DOSE 150 MG
     Route: 048
     Dates: start: 20150524
  4. SOURSOP [Concomitant]
     Indication: THERAPEUTIC PROCEDURE
     Dosage: TOTAL DAILY DOSE 1000 MG, FORMULATION PILL
     Route: 048
     Dates: start: 201412
  5. AMOXICILLIN. [Concomitant]
     Active Substance: AMOXICILLIN
     Indication: PNEUMONITIS
     Dosage: TOTAL DAILY DOSE 1500 MG
     Route: 048
     Dates: start: 20150610, end: 20150611
  6. PEMBROLIZUMAB. [Suspect]
     Active Substance: PEMBROLIZUMAB
     Dosage: 10 MG/KG, Q3W
     Route: 042
     Dates: start: 20150529, end: 20150529
  7. LOSARTAN. [Concomitant]
     Active Substance: LOSARTAN
     Indication: HYPERTENSION
     Dosage: 100 MG, QD
     Route: 048
     Dates: start: 201308
  8. HYDROCHLOROTHIAZIDE. [Concomitant]
     Active Substance: HYDROCHLOROTHIAZIDE
     Indication: HYPERTENSION
     Dosage: 12.5 MG, QD
     Route: 048
     Dates: start: 201301
  9. PEMBROLIZUMAB. [Suspect]
     Active Substance: PEMBROLIZUMAB
     Indication: NON-SMALL CELL LUNG CANCER
     Dosage: 10 MG/KG, Q3W.
     Route: 042
     Dates: start: 20150130, end: 20150508
  10. OMEPRAZOLE. [Concomitant]
     Active Substance: OMEPRAZOLE
     Indication: DYSPEPSIA
     Dosage: 20 MG, QD. FORMULATION PILL
     Route: 048
     Dates: start: 201501
  11. SODIUM CHLORIDE. [Concomitant]
     Active Substance: SODIUM CHLORIDE
     Indication: FLUID REPLACEMENT
     Dosage: TOTAL DAILY DOSE: 700 ML
     Route: 042
     Dates: start: 20150130

REACTIONS (1)
  - Pneumonitis [Fatal]

NARRATIVE: CASE EVENT DATE: 20150611
